FAERS Safety Report 9166821 (Version 1)
Quarter: 2012Q4

REPORT INFORMATION
  Report Type: 
  Country: US (occurrence: US)
  Receive Date: 20121105
  Receipt Date: 20121105
  Transmission Date: 20130627
  Serious: Yes (Life-Threatening, Hospitalization)
  Sender: FDA-Public Use
  Company Number: US-BRACCO-008689

PATIENT
  Age: 81 None
  Sex: Female
  Weight: 73 kg

DRUGS (10)
  1. ISOVUE 300 [Suspect]
     Indication: POSITRON EMISSION TOMOGRAM
     Dosage: Lot# 2A67512; Exp. date: 31-Jan-2015: Lot# AC2P561A; Exp. date: 31-May-2015
     Route: 042
     Dates: start: 20121002, end: 20121002
  2. ISOVUE 300 [Suspect]
     Indication: COLON CANCER
     Dosage: Lot# 2A67512; Exp. date: 31-Jan-2015: Lot# AC2P561A; Exp. date: 31-May-2015
     Route: 042
     Dates: start: 20121002, end: 20121002
  3. IMURAN [Concomitant]
  4. GEMFIBROZIL [Concomitant]
  5. K-DUR [Concomitant]
  6. LASIX [Concomitant]
  7. AMLODIPINE W/BENAZEPRIL [Concomitant]
  8. DIGOXIN [Concomitant]
  9. COUMADIN [Concomitant]
  10. PROPANOLOL [Concomitant]

REACTIONS (4)
  - Acute respiratory failure [Recovered/Resolved]
  - Endocarditis [Recovered/Resolved]
  - Cardiac failure congestive [Recovered/Resolved]
  - Hyperhidrosis [Recovered/Resolved]
